FAERS Safety Report 7653559-5 (Version None)
Quarter: 2011Q3

REPORT INFORMATION
  Report Type: 
  Country: None (occurrence: None)
  Receive Date: 20110802
  Receipt Date: 20110802
  Transmission Date: 20111222
  Serious: Yes (Other)
  Sender: FDA-Public Use
  Company Number: None

PATIENT
  Age: 54 Year
  Sex: Female
  Weight: 65.7716 kg

DRUGS (1)
  1. BONIVA [Suspect]
     Dosage: 150 MG 1 MONTHLY
     Dates: start: 20110718

REACTIONS (7)
  - MOBILITY DECREASED [None]
  - ARTHRITIS [None]
  - CHEST PAIN [None]
  - BACK PAIN [None]
  - DIARRHOEA [None]
  - PAIN IN EXTREMITY [None]
  - ABASIA [None]
